FAERS Safety Report 8795588 (Version 2)
Quarter: 2013Q2

REPORT INFORMATION
  Report Type: Report from Study
  Country: BR (occurrence: BR)
  Receive Date: 20120919
  Receipt Date: 20130410
  Transmission Date: 20140414
  Serious: Yes (Hospitalization)
  Sender: FDA-Public Use
  Company Number: BR-ABBOTT-12P-020-0979565-00

PATIENT
  Sex: Female
  Weight: 65 kg

DRUGS (5)
  1. HUMIRA [Suspect]
     Indication: ANKYLOSING SPONDYLITIS
     Dates: start: 20120802
  2. ARAVA [Concomitant]
     Indication: ANKYLOSING SPONDYLITIS
  3. METHOTREXATE [Concomitant]
     Indication: ANKYLOSING SPONDYLITIS
  4. SULFASALAZINE [Concomitant]
     Indication: ANKYLOSING SPONDYLITIS
  5. VASOPRIL PLUS [Concomitant]
     Indication: HYPERTENSION

REACTIONS (4)
  - Kidney infection [Recovering/Resolving]
  - Renal abscess [Recovering/Resolving]
  - Feeling abnormal [Unknown]
  - Urinary tract infection [Unknown]
